FAERS Safety Report 8033893-X (Version None)
Quarter: 2012Q1

REPORT INFORMATION
  Report Type: 
  Country: None (occurrence: None)
  Receive Date: 20120110
  Receipt Date: 20111228
  Transmission Date: 20120608
  Serious: Yes (Hospitalization)
  Sender: FDA-Public Use
  Company Number: FR-MYLANLABS-2011S1026384

PATIENT
  Age: 37 Year
  Sex: Male

DRUGS (6)
  1. ALIMTA [Suspect]
     Indication: LUNG ADENOCARCINOMA
     Dates: start: 20110621, end: 20110824
  2. ONDANSETRON [Suspect]
     Route: 042
     Dates: start: 20110621, end: 20110824
  3. CISPLATIN [Suspect]
     Indication: LUNG ADENOCARCINOMA
     Route: 041
     Dates: start: 20110621, end: 20110824
  4. EMEND [Suspect]
     Route: 048
     Dates: start: 20110621, end: 20110824
  5. METHYLPREDNISOLONE [Suspect]
     Route: 042
     Dates: start: 20110621, end: 20110824
  6. ZOFRAN [Suspect]
     Route: 048
     Dates: start: 20110621, end: 20110826

REACTIONS (3)
  - ANAEMIA [None]
  - ISCHAEMIC STROKE [None]
  - THROMBOCYTOPENIA [None]
